FAERS Safety Report 8767144 (Version 1)
Quarter: 2012Q4

REPORT INFORMATION
  Report Type: 
  Country: CN (occurrence: CN)
  Receive Date: 20120911
  Receipt Date: 20120911
  Transmission Date: 20130627
  Serious: Yes (Life-Threatening, Hospitalization)
  Sender: FDA-Public Use
  Company Number: CN-BAYER-2012-090915

PATIENT
  Age: 10 Year
  Sex: Female

DRUGS (1)
  1. ULTRAVIST 370 [Suspect]
     Indication: COMPUTERISED TOMOGRAM
     Dosage: 50 ml, UNK
     Route: 042
     Dates: start: 20120829, end: 20120829

REACTIONS (4)
  - Vision blurred [None]
  - Urticaria [None]
  - Heart rate decreased [None]
  - Coma [None]
